FAERS Safety Report 18851543 (Version 2)
Quarter: 2021Q1

REPORT INFORMATION
  Report Type: Spontaneous
  Country: US (occurrence: US)
  Receive Date: 20210205
  Receipt Date: 20210322
  Transmission Date: 20210420
  Serious: Yes (Hospitalization)
  Sender: FDA-Public Use
  Company Number: US-EMCURE PHARMACEUTICALS LTD-2021-EPL-000378

PATIENT
  Age: 59 Year
  Sex: Female

DRUGS (8)
  1. OCTREOTIDE. [Suspect]
     Active Substance: OCTREOTIDE
     Dosage: 500 ?G/H (INFUSION WAS INCREASED TO 500 MG/H)
  2. OCTREOTIDE. [Suspect]
     Active Substance: OCTREOTIDE
     Dosage: INTERMITTENT OCTREOTIDE BOLUSES OF 500 ?G
  3. OCTREOTIDE. [Suspect]
     Active Substance: OCTREOTIDE
     Dosage: 50 ?G/H (SLOWLY WEANED TO 50 ?G/H)
  4. OCTREOTIDE. [Suspect]
     Active Substance: OCTREOTIDE
     Indication: CARCINOID CRISIS
     Dosage: DEPOT INJECTIONS (ESCALATED TO 60 MG/MONTH)
  5. OCTREOTIDE. [Suspect]
     Active Substance: OCTREOTIDE
     Indication: PROPHYLAXIS
     Dosage: 150 ?G/H INFUSION (PREPROCEDURALLY)
  6. OCTREOTIDE. [Suspect]
     Active Substance: OCTREOTIDE
     Dosage: 300 ?G/H INFUSION INCREASED
  7. OCTREOTIDE. [Suspect]
     Active Substance: OCTREOTIDE
     Dosage: 24 HR COURSE OF CONTINUOUS AT 150 ?G/H
  8. OCTREOTIDE. [Suspect]
     Active Substance: OCTREOTIDE
     Dosage: 150 ?G/H 3 TIMES DAILY UNTIL DISCHARGE
     Route: 058

REACTIONS (3)
  - Cardiogenic shock [Recovered/Resolved]
  - Renal failure [Recovered/Resolved]
  - Myocardial ischaemia [Recovered/Resolved]
